FAERS Safety Report 9062485 (Version 1)
Quarter: 2013Q1

REPORT INFORMATION
  Report Type: Spontaneous
  Country: US (occurrence: US)
  Receive Date: 20130213
  Receipt Date: 20130213
  Transmission Date: 20140127
  Serious: Yes (Other)
  Sender: FDA-Public Use
  Company Number: US-009507513-1302USA003760

PATIENT
  Age: 58 None
  Sex: Male

DRUGS (1)
  1. PEGINTRON [Suspect]
     Indication: CHRONIC HEPATITIS C
     Dosage: 80 MCG/0.5 ML, QW
     Route: 058
     Dates: start: 20121222, end: 20130201

REACTIONS (4)
  - Haemoglobin decreased [Unknown]
  - Dizziness [Unknown]
  - Rash [Unknown]
  - Rash [Unknown]
